FAERS Safety Report 4680279-1 (Version None)
Quarter: 2005Q2

REPORT INFORMATION
  Report Type: 
  Country: None (occurrence: None)
  Receive Date: 20050601
  Receipt Date: 20050517
  Transmission Date: 20051028
  Serious: Yes (Life-Threatening)
  Sender: FDA-Public Use
  Company Number: GBS050417209

PATIENT
  Age: 32 Year
  Sex: Female
  Weight: 60 kg

DRUGS (3)
  1. CYMBALTA [Suspect]
     Indication: GENITAL DISORDER FEMALE
     Dosage: 60 MG DAY
     Dates: start: 20050401, end: 20050424
  2. DIAZEPAM [Concomitant]
  3. CO-CODAMOL [Concomitant]

REACTIONS (6)
  - ABNORMAL BEHAVIOUR [None]
  - AGGRESSION [None]
  - SELF-INJURIOUS IDEATION [None]
  - SUICIDAL IDEATION [None]
  - TREATMENT NONCOMPLIANCE [None]
  - VISION BLURRED [None]
